FAERS Safety Report 8046395-1 (Version None)
Quarter: 2012Q1

REPORT INFORMATION
  Report Type: 
  Country: None (occurrence: None)
  Receive Date: 20120113
  Receipt Date: 20120110
  Transmission Date: 20120608
  Serious: Yes (Death, Other)
  Sender: FDA-Public Use
  Company Number: GB-PFIZER INC-2012007113

PATIENT
  Age: 51 Year
  Sex: Male

DRUGS (4)
  1. VENLAFAXINE HCL [Suspect]
     Dosage: 75 MG
     Dates: start: 20100827, end: 20100930
  2. VENLAFAXINE HCL [Suspect]
     Indication: DEPRESSION
     Dosage: UNK
     Dates: end: 20100101
  3. VENLAFAXINE HCL [Suspect]
     Dosage: 150 MG
     Dates: start: 20100930
  4. MIRTAZAPINE [Suspect]
     Indication: DEPRESSION
     Dosage: UNK
     Dates: start: 20100101

REACTIONS (3)
  - ANXIETY [None]
  - COMPLETED SUICIDE [None]
  - DRUG INEFFECTIVE [None]
